FAERS Safety Report 4835863-9 (Version None)
Quarter: 2005Q4

REPORT INFORMATION
  Report Type: 
  Country: None (occurrence: None)
  Receive Date: 20051118
  Receipt Date: 20051105
  Transmission Date: 20060501
  Serious: Yes (Other)
  Sender: FDA-Public Use
  Company Number: 2005130450

PATIENT
  Age: 85 Year
  Sex: Female
  Weight: 71.6683 kg

DRUGS (7)
  1. NEURONTIN [Suspect]
     Indication: NEUROPATHY PERIPHERAL
     Dosage: 600 MG (300 MG, 2 IN 1 D)
     Dates: start: 20050824, end: 20050913
  2. LIPITOR [Concomitant]
  3. ALPRAZOLAM [Concomitant]
  4. QUININE SULFATE [Concomitant]
  5. HYDROCHLOROTHIAZIDE [Concomitant]
  6. FOSAMAX [Concomitant]
  7. IBUPROFEN [Concomitant]

REACTIONS (1)
  - DEAFNESS UNILATERAL [None]
